FAERS Safety Report 5100917-9 (Version None)
Quarter: 2006Q3

REPORT INFORMATION
  Report Type: 
  Country: None (occurrence: None)
  Receive Date: 20060731
  Receipt Date: 20060602
  Transmission Date: 20061208
  Serious: No
  Sender: FDA-Public Use
  Company Number: 2006PV014989

PATIENT
  Age: 56 Year
  Sex: Female
  Weight: 102.5129 kg

DRUGS (2)
  1. BYETTA [Suspect]
     Indication: DIABETES MELLITUS NON-INSULIN-DEPENDENT
     Dosage: SEE IMAGE
     Route: 058
     Dates: start: 20060201, end: 20060401
  2. BYETTA [Suspect]
     Indication: DIABETES MELLITUS NON-INSULIN-DEPENDENT
     Dosage: SEE IMAGE
     Route: 058
     Dates: start: 20060401

REACTIONS (7)
  - BLOOD GLUCOSE INCREASED [None]
  - COLD SWEAT [None]
  - DIZZINESS [None]
  - DYSURIA [None]
  - FEELING HOT [None]
  - NAUSEA [None]
  - WEIGHT DECREASED [None]
